FAERS Safety Report 10884788 (Version 2)
Quarter: 2016Q3

REPORT INFORMATION
  Report Type: Report from Study
  Country: US (occurrence: US)
  Receive Date: 20150304
  Receipt Date: 20160902
  Transmission Date: 20161109
  Serious: Yes (Other)
  Sender: FDA-Public Use
  Company Number: US-SA-2015SA025678

PATIENT
  Age: 69 Year
  Sex: Male

DRUGS (14)
  1. LASIX [Concomitant]
     Active Substance: FUROSEMIDE
  2. FLOMAX [Concomitant]
     Active Substance: TAMSULOSIN HYDROCHLORIDE
  3. APIDRA SOLOSTAR [Suspect]
     Active Substance: INSULIN GLULISINE
     Indication: TYPE 2 DIABETES MELLITUS
     Dosage: 10-12 UNITS
     Route: 065
     Dates: start: 2014, end: 2016
  4. AMARYL [Concomitant]
     Active Substance: GLIMEPIRIDE
     Indication: DIABETES MELLITUS
  5. SOLOSTAR [Concomitant]
     Active Substance: DEVICE
     Dates: start: 2014, end: 2016
  6. PLAVIX [Concomitant]
     Active Substance: CLOPIDOGREL BISULFATE
  7. ZOCOR [Concomitant]
     Active Substance: SIMVASTATIN
  8. COREG [Concomitant]
     Active Substance: CARVEDILOL
  9. ZESTRIL [Concomitant]
     Active Substance: LISINOPRIL
  10. CELEXA [Concomitant]
     Active Substance: CITALOPRAM HYDROBROMIDE
  11. XANAX [Concomitant]
     Active Substance: ALPRAZOLAM
  12. DITROPAN [Concomitant]
     Active Substance: OXYBUTYNIN CHLORIDE
  13. FENOFIBRATE. [Concomitant]
     Active Substance: FENOFIBRATE
  14. LEVEMIR [Concomitant]
     Active Substance: INSULIN DETEMIR

REACTIONS (6)
  - Renal disorder [Unknown]
  - Cardiac disorder [Unknown]
  - Blood sodium abnormal [Unknown]
  - Oedema [Unknown]
  - Blood glucose decreased [Unknown]
  - Bladder cancer stage III [Recovered/Resolved]

NARRATIVE: CASE EVENT DATE: 2014
